FAERS Safety Report 19723680 (Version 11)
Quarter: 2022Q1

REPORT INFORMATION
  Report Type: Report from Study
  Country: US (occurrence: None)
  Receive Date: 20210819
  Receipt Date: 20220301
  Transmission Date: 20220423
  Serious: Yes (Hospitalization)
  Sender: FDA-Public Use
  Company Number: US-ROCHE-2888922

PATIENT
  Age: 18 Year
  Sex: Male
  Weight: 64.8 kg

DRUGS (28)
  1. OCRELIZUMAB [Suspect]
     Active Substance: OCRELIZUMAB
     Indication: Relapsing-remitting multiple sclerosis
     Dosage: TWO INFUSIONS (300 MG) OF HALF THE DOSE 14 DAYS APART FOR THE FIRST DOSE, THEN SUBSEQUENT DOSES AS A
     Route: 042
     Dates: start: 20200629
  2. METHYLPREDNISOLONE [Suspect]
     Active Substance: METHYLPREDNISOLONE
     Indication: Premedication
     Dosage: MOST RECENT DOSE OF STUDY DRUG PRIOR TO SAE ON 02/JUN/2021 (100 MG) AT 10:19 AM
     Route: 042
  3. EXCEDRIN (UNITED STATES) [Concomitant]
     Indication: Headache
     Route: 048
  4. CHOLECALCIFEROL [Concomitant]
     Active Substance: CHOLECALCIFEROL
     Indication: Vitamin D deficiency
     Route: 048
     Dates: start: 20190927
  5. BENADRYL [Concomitant]
     Active Substance: DIPHENHYDRAMINE HYDROCHLORIDE
     Indication: Rash
     Route: 048
     Dates: start: 20201011
  6. DIAZEPAM [Concomitant]
     Active Substance: DIAZEPAM
     Indication: Anxiety
     Route: 048
     Dates: start: 20201214
  7. AMLODIPINE [Concomitant]
     Active Substance: AMLODIPINE BESYLATE
     Indication: Hypertension
     Route: 048
     Dates: start: 20210121
  8. DIPHENHYDRAMINE [Concomitant]
     Active Substance: DIPHENHYDRAMINE
     Route: 048
     Dates: start: 20210602, end: 20210602
  9. ACETAMINOPHEN [Concomitant]
     Active Substance: ACETAMINOPHEN
     Route: 048
     Dates: start: 20210602, end: 20210602
  10. METHYLPREDNISOLONE [Concomitant]
     Active Substance: METHYLPREDNISOLONE
     Route: 042
     Dates: start: 20210602, end: 20210602
  11. DULCOLAX (BISACODYL) [Concomitant]
     Active Substance: BISACODYL
     Indication: Constipation
     Dates: start: 202106
  12. SEA BUCKTHORN [Concomitant]
     Indication: Constipation
     Dates: start: 202106
  13. CLEARLAX (UNITED STATES) [Concomitant]
     Indication: Constipation
     Route: 048
     Dates: start: 20210713, end: 202107
  14. DOCUSATE SODIUM [Concomitant]
     Active Substance: DOCUSATE SODIUM
     Indication: Constipation
     Route: 048
     Dates: start: 202106, end: 202106
  15. DEXTROSE;POTASSIUM CHLORIDE;SODIUM CHLORIDE [Concomitant]
     Dosage: 91.3 OTHER, 122 OTHER
     Route: 042
     Dates: start: 20210816, end: 20210824
  16. LISINOPRIL [Concomitant]
     Active Substance: LISINOPRIL
     Indication: Hypertension
     Route: 048
     Dates: start: 20210817
  17. VERSED [Concomitant]
     Active Substance: MIDAZOLAM HYDROCHLORIDE
     Dates: start: 20210817, end: 20210818
  18. SENNA [Concomitant]
     Active Substance: SENNA LEAF\SENNOSIDES\SENNOSIDES A AND B
     Route: 048
     Dates: start: 20210818, end: 20210818
  19. SENNA [Concomitant]
     Active Substance: SENNA LEAF\SENNOSIDES\SENNOSIDES A AND B
     Route: 048
     Dates: start: 20210818, end: 20210818
  20. GOLYTELY [Concomitant]
     Active Substance: POLYETHYLENE GLYCOL 3350\POTASSIUM CHLORIDE\SODIUM BICARBONATE\SODIUM CHLORIDE\SODIUM SULFATE
     Dosage: 297 OTHER
     Dates: start: 20210818, end: 20210819
  21. GOLYTELY [Concomitant]
     Active Substance: POLYETHYLENE GLYCOL 3350\POTASSIUM CHLORIDE\SODIUM BICARBONATE\SODIUM CHLORIDE\SODIUM SULFATE
     Dosage: 594 OTHER
     Dates: start: 20210819, end: 20210819
  22. ONDANSETRON [Concomitant]
     Active Substance: ONDANSETRON
     Indication: Nausea
     Route: 048
     Dates: start: 20210818, end: 20210818
  23. ONDANSETRON [Concomitant]
     Active Substance: ONDANSETRON
     Indication: Vomiting
     Route: 048
     Dates: start: 20210818
  24. EQUATE MAXIMUM STRENGTH HEMORRHOIDAL CREAM [Concomitant]
     Indication: Constipation
     Route: 061
     Dates: start: 20210713, end: 202107
  25. PFIZER-BIONTECH COVID-19 VACCINE [Concomitant]
     Active Substance: TOZINAMERAN
     Dosage: 1 OTHER
     Route: 030
     Dates: start: 20210917, end: 20210917
  26. PFIZER-BIONTECH COVID-19 VACCINE [Concomitant]
     Active Substance: TOZINAMERAN
     Dosage: 1 OTHER
     Route: 030
     Dates: start: 20211011, end: 20211011
  27. CEFTRIAXONE [Concomitant]
     Active Substance: CEFTRIAXONE
     Indication: Gonorrhoea
     Route: 042
     Dates: start: 20210818, end: 20210818
  28. IBUPROFEN [Concomitant]
     Active Substance: IBUPROFEN
     Route: 048
     Dates: start: 20201127

REACTIONS (3)
  - Candida infection [Recovered/Resolved]
  - Gonococcal infection [Recovered/Resolved]
  - Pneumonia [Recovered/Resolved]

NARRATIVE: CASE EVENT DATE: 20210701
